FAERS Safety Report 9693367 (Version 2)
Quarter: 2013Q4

REPORT INFORMATION
  Report Type: Report from Study
  Country: DE (occurrence: DE)
  Receive Date: 20131118
  Receipt Date: 20131118
  Transmission Date: 20140711
  Serious: Yes (Death, Hospitalization)
  Sender: FDA-Public Use
  Company Number: DE-ROCHE-1081015

PATIENT
  Age: 70 Year
  Sex: Female
  Weight: 80 kg

DRUGS (4)
  1. TOCILIZUMAB [Suspect]
     Indication: RHEUMATOID ARTHRITIS
     Dosage: LAST DOSE PRIOR TO SAE:17/FEB/2012
     Route: 042
     Dates: start: 20100930, end: 20120217
  2. PREDNISOLON [Suspect]
     Indication: RHEUMATOID ARTHRITIS
     Dosage: LAST DOSE PRIOR TO SAE:24/FEB/2012
     Route: 048
     Dates: start: 19900101
  3. NAPROXEN [Concomitant]
     Indication: RHEUMATOID ARTHRITIS
     Dosage: LAST DOSE PRIOR TO SAE:24/FEB/2012
     Route: 048
     Dates: start: 20080401
  4. CALCIUM D3 [Concomitant]
     Dosage: LAST DOSE PRIOR TO SAE:24/FEB/2012
     Route: 048
     Dates: start: 20081001

REACTIONS (3)
  - Pulmonary embolism [Fatal]
  - Empyema [Unknown]
  - Pneumonia [Unknown]
